FAERS Safety Report 9848103 (Version 1)
Quarter: 2014Q1

REPORT INFORMATION
  Report Type: Spontaneous
  Country: US (occurrence: None)
  Receive Date: 20140117
  Receipt Date: 20140117
  Transmission Date: 20141002
  Serious: No
  Sender: FDA-Public Use
  Company Number: B090279A

PATIENT
  Age: 42 Year
  Sex: Female

DRUGS (3)
  1. CLONAZEPAM (CLONAZEPAM) (CLONAZEPAM) [Suspect]
     Route: 048
  2. PAROXETINE HYDROCHLORIDE [Suspect]
     Route: 048
  3. AMITRIPTYLINE (AMITRIPTYLINE) [Suspect]
     Route: 048

REACTIONS (2)
  - Cardio-respiratory arrest [None]
  - Intentional drug misuse [None]
